FAERS Safety Report 7478169-4 (Version None)
Quarter: 2011Q2

REPORT INFORMATION
  Report Type: 
  Country: None (occurrence: None)
  Receive Date: 20110509
  Receipt Date: 20110419
  Transmission Date: 20111010
  Serious: Yes (Hospitalization, Other)
  Sender: FDA-Public Use
  Company Number: JPI-P-011884

PATIENT
  Age: 39 Year
  Sex: Female
  Weight: 105.2345 kg

DRUGS (26)
  1. XYREM [Suspect]
     Indication: CATAPLEXY
     Dosage: SEE IMAGE
     Route: 048
     Dates: start: 20090201, end: 20090101
  2. XYREM [Suspect]
     Indication: CATAPLEXY
     Dosage: SEE IMAGE
     Route: 048
     Dates: start: 20071001, end: 20080101
  3. XYREM [Suspect]
     Indication: CATAPLEXY
     Dosage: SEE IMAGE
     Route: 048
     Dates: start: 20080101, end: 20090201
  4. XYREM [Suspect]
     Indication: CATAPLEXY
     Dosage: SEE IMAGE
     Route: 048
     Dates: start: 20060101
  5. XYREM [Suspect]
     Indication: CATAPLEXY
     Dosage: SEE IMAGE
     Route: 048
     Dates: start: 20070901, end: 20071001
  6. XYREM [Suspect]
     Indication: CATAPLEXY
     Dosage: SEE IMAGE
     Route: 048
     Dates: start: 20080101, end: 20080101
  7. XYREM [Suspect]
     Indication: CATAPLEXY
     Dosage: SEE IMAGE
     Route: 048
     Dates: start: 20090101
  8. FENTANYL [Concomitant]
  9. VITAMIN D [Concomitant]
  10. ONDANSETRON [Concomitant]
  11. DICLOFENAC SODIUM (SOLARAZE) [Concomitant]
  12. MONTELUKAST SODIUM [Concomitant]
  13. PIMECROLIMUS [Concomitant]
  14. DEXTROAMPHETAMIN CR [Concomitant]
  15. MOMETASONE FUROATE [Concomitant]
  16. SIMVASTATIN [Concomitant]
  17. ALBUTEROL [Concomitant]
  18. BENZTROPINE MESYLATE [Concomitant]
  19. CLONAZEPAM [Concomitant]
  20. CETIRIZINE HCL [Concomitant]
  21. BUSPIRONE HCL [Concomitant]
  22. KETOCONAZOLE [Concomitant]
  23. DIHYDROERGOTAMINE [Concomitant]
  24. TIZANIDINE [Concomitant]
  25. LORAZEPAM [Concomitant]
  26. LIDOCAINE [Concomitant]

REACTIONS (32)
  - DISSOCIATIVE IDENTITY DISORDER [None]
  - INITIAL INSOMNIA [None]
  - HYPOKALAEMIA [None]
  - MIDDLE INSOMNIA [None]
  - POOR QUALITY SLEEP [None]
  - CONDITION AGGRAVATED [None]
  - NIGHT SWEATS [None]
  - LABILE BLOOD PRESSURE [None]
  - CHEST PAIN [None]
  - PAIN IN JAW [None]
  - PAIN [None]
  - ARTHRALGIA [None]
  - MUSCLE TWITCHING [None]
  - SYSTEMIC LUPUS ERYTHEMATOSUS [None]
  - HOT FLUSH [None]
  - HYPOXIA [None]
  - GLOMERULAR FILTRATION RATE DECREASED [None]
  - VITAMIN D DEFICIENCY [None]
  - WEIGHT INCREASED [None]
  - SLEEP APNOEA SYNDROME [None]
  - RHEUMATOID ARTHRITIS [None]
  - SINUS TACHYCARDIA [None]
  - AUTONOMIC NERVOUS SYSTEM IMBALANCE [None]
  - FIBROMYALGIA [None]
  - POST-TRAUMATIC STRESS DISORDER [None]
  - ARTHROPATHY [None]
  - POLYCYSTIC OVARIES [None]
  - PSORIATIC ARTHROPATHY [None]
  - HYPERHIDROSIS [None]
  - MIGRAINE [None]
  - NAUSEA [None]
  - INTERVERTEBRAL DISC DEGENERATION [None]
